FAERS Safety Report 8031430-7 (Version None)
Quarter: 2012Q1

REPORT INFORMATION
  Report Type: 
  Country: None (occurrence: None)
  Receive Date: 20120109
  Receipt Date: 20120102
  Transmission Date: 20120608
  Serious: Yes (Hospitalization)
  Sender: FDA-Public Use
  Company Number: US-VERTEX PHARMACEUTICALS INC.-AE-2012-000293

PATIENT
  Sex: Female

DRUGS (3)
  1. PEGASYS [Concomitant]
     Indication: HEPATITIS C
     Route: 058
     Dates: start: 20111004
  2. RIBAVIRIN [Concomitant]
     Indication: HEPATITIS C
     Dates: start: 20111004, end: 20111231
  3. INCIVEK [Suspect]
     Indication: HEPATITIS C
     Route: 048
     Dates: start: 20111005, end: 20111229

REACTIONS (4)
  - SKIN ULCER [None]
  - FEELING HOT [None]
  - RASH [None]
  - PRURITUS [None]
